FAERS Safety Report 17162945 (Version 2)
Quarter: 2020Q1

REPORT INFORMATION
  Report Type: Spontaneous
  Country: US (occurrence: US)
  Receive Date: 20191217
  Receipt Date: 20200319
  Transmission Date: 20200409
  Serious: Yes (Hospitalization, Other)
  Sender: FDA-Public Use
  Company Number: US-GILEAD-2019-0442875

PATIENT
  Age: 47 Year
  Sex: Female

DRUGS (52)
  1. DULOXETINE. [Concomitant]
     Active Substance: DULOXETINE
  2. LOPERAMIDE [Concomitant]
     Active Substance: LOPERAMIDE
  3. TIVICAY [Concomitant]
     Active Substance: DOLUTEGRAVIR SODIUM
     Dosage: UNK
     Dates: start: 201904
  4. POTASSIUM CHLORIDE. [Concomitant]
     Active Substance: POTASSIUM CHLORIDE
  5. EPOGEN [Concomitant]
     Active Substance: ERYTHROPOIETIN
  6. ALOGLIPTIN;METFORMIN [Concomitant]
  7. STRIBILD [Suspect]
     Active Substance: COBICISTAT\ELVITEGRAVIR\EMTRICITABINE\TENOFOVIR DISOPROXIL FUMARATE
     Indication: HIV INFECTION
     Dosage: 1 DOSAGE FORM, QD
     Route: 048
     Dates: start: 201812, end: 201904
  8. ASPIRIN 81 [Concomitant]
     Active Substance: ASPIRIN
  9. LIDODERM [Concomitant]
     Active Substance: LIDOCAINE
  10. PROCRIT [Concomitant]
     Active Substance: ERYTHROPOIETIN
  11. VENOFER [Concomitant]
     Active Substance: IRON SUCROSE
  12. VITAMINS NOS [Concomitant]
     Active Substance: VITAMINS
  13. GLIMEPIRIDE. [Concomitant]
     Active Substance: GLIMEPIRIDE
  14. ADMELOG [Concomitant]
     Active Substance: INSULIN LISPRO
  15. FERROUS SULFATE. [Concomitant]
     Active Substance: FERROUS SULFATE
  16. PERCOCET [Concomitant]
     Active Substance: ACETAMINOPHEN\OXYCODONE HYDROCHLORIDE
  17. AMPICILLIN [Concomitant]
     Active Substance: AMPICILLIN
  18. POTASSIUM PHOSPHATES [Concomitant]
     Active Substance: POTASSIUM PHOSPHATE, DIBASIC\POTASSIUM PHOSPHATE, MONOBASIC
  19. TRUVADA [Suspect]
     Active Substance: EMTRICITABINE\TENOFOVIR DISOPROXIL FUMARATE
     Dosage: UNK
     Route: 048
     Dates: start: 201805
  20. PRAVASTATIN. [Concomitant]
     Active Substance: PRAVASTATIN
  21. CALCITRIOL. [Concomitant]
     Active Substance: CALCITRIOL
  22. RETACRIT [Concomitant]
     Active Substance: EPOETIN ALFA-EPBX
  23. HUMALOG [Concomitant]
     Active Substance: INSULIN LISPRO
  24. VITAMIN D [COLECALCIFEROL] [Concomitant]
     Active Substance: CHOLECALCIFEROL
  25. HUMULIN NOS [Concomitant]
     Active Substance: INSULIN HUMAN
  26. METFORMIN [Suspect]
     Active Substance: METFORMIN HYDROCHLORIDE
     Indication: TYPE 2 DIABETES MELLITUS
     Dosage: 500 MG, QD
     Route: 048
  27. MIRTAZAPINE. [Concomitant]
     Active Substance: MIRTAZAPINE
  28. TRAZODONE [Concomitant]
     Active Substance: TRAZODONE HYDROCHLORIDE
  29. GABAPENTIN. [Concomitant]
     Active Substance: GABAPENTIN
  30. POTASSIUM CITRATE. [Concomitant]
     Active Substance: POTASSIUM CITRATE
  31. KEPPRA [Concomitant]
     Active Substance: LEVETIRACETAM
  32. TRUVADA [Suspect]
     Active Substance: EMTRICITABINE\TENOFOVIR DISOPROXIL FUMARATE
     Indication: HIV INFECTION
     Dosage: UNK
     Route: 048
     Dates: start: 201510, end: 201511
  33. BASAGLAR [Concomitant]
     Active Substance: INSULIN GLARGINE
  34. AMBIEN [Concomitant]
     Active Substance: ZOLPIDEM TARTRATE
  35. K PHOS NEUTRAL [Concomitant]
     Active Substance: POTASSIUM PHOSPHATE, MONOBASIC\SODIUM PHOSPHATE, DIBASIC, ANHYDROUS\SODIUM PHOSPHATE, MONOBASIC, MONOHYDRATE
  36. BACLOFEN. [Concomitant]
     Active Substance: BACLOFEN
  37. ZOFRAN [Concomitant]
     Active Substance: ONDANSETRON HYDROCHLORIDE
  38. COMPLERA [Suspect]
     Active Substance: EMTRICITABINE\RILPIVIRINE HYDROCHLORIDE\TENOFOVIR DISOPROXIL FUMARATE
     Indication: HIV INFECTION
     Dosage: 1 DOSAGE FORM (200-25-300 MG), QD
     Route: 048
     Dates: start: 201302, end: 201510
  39. DESCOVY [Concomitant]
     Active Substance: EMTRICITABINE\TENOFOVIR ALAFENAMIDE FUMARATE
     Indication: HIV INFECTION
     Dosage: 1 DOSAGE FORM (200-25 MG), QD
     Route: 048
     Dates: start: 201904
  40. ATORVASTATIN [Concomitant]
     Active Substance: ATORVASTATIN
  41. SODIUM BICARBONATE. [Concomitant]
     Active Substance: SODIUM BICARBONATE
  42. EDURANT [Concomitant]
     Active Substance: RILPIVIRINE HYDROCHLORIDE
  43. ALOGLIPTIN BENZOATE [Concomitant]
     Active Substance: ALOGLIPTIN BENZOATE
  44. JANUVIA [Concomitant]
     Active Substance: SITAGLIPTIN PHOSPHATE
  45. QUETIAPINE. [Concomitant]
     Active Substance: QUETIAPINE
  46. CEPHALEXIN [CEFALEXIN] [Concomitant]
     Active Substance: CEPHALEXIN
  47. COMPLERA [Suspect]
     Active Substance: EMTRICITABINE\RILPIVIRINE HYDROCHLORIDE\TENOFOVIR DISOPROXIL FUMARATE
     Dosage: 1 DOSAGE FORM (200-25-300 MG), QD
     Route: 048
     Dates: start: 201511, end: 201812
  48. BIKTARVY [Concomitant]
     Active Substance: BICTEGRAVIR SODIUM\EMTRICITABINE\TENOFOVIR ALAFENAMIDE FUMARATE
     Indication: HIV INFECTION
  49. BUSPIRONE [Concomitant]
     Active Substance: BUSPIRONE HYDROCHLORIDE
  50. FLUTICASONE PROPIONATE. [Concomitant]
     Active Substance: FLUTICASONE PROPIONATE
  51. GLIPIZIDE. [Concomitant]
     Active Substance: GLIPIZIDE
  52. NOVOLOG [Concomitant]
     Active Substance: INSULIN ASPART

REACTIONS (8)
  - Fanconi syndrome acquired [Unknown]
  - Pain [Unknown]
  - Economic problem [Unknown]
  - Anhedonia [Unknown]
  - Anxiety [Unknown]
  - Acute kidney injury [Recovered/Resolved]
  - Emotional distress [Unknown]
  - Chronic kidney disease [Not Recovered/Not Resolved]

NARRATIVE: CASE EVENT DATE: 201811
